FAERS Safety Report 9742277 (Version 1)
Quarter: 2013Q4

REPORT INFORMATION
  Report Type: Spontaneous
  Country: US (occurrence: US)
  Receive Date: 20131210
  Receipt Date: 20131210
  Transmission Date: 20140711
  Serious: No
  Sender: FDA-Public Use
  Company Number: US-BAYER-2013-145541

PATIENT
  Age: 43 Year
  Sex: Female

DRUGS (2)
  1. BEYAZ [Suspect]
     Indication: HORMONE LEVEL ABNORMAL
     Dosage: UNK
     Route: 048
     Dates: start: 201308, end: 201310
  2. IBUPROFEN [Concomitant]

REACTIONS (2)
  - Off label use [None]
  - Local swelling [None]
